FAERS Safety Report 22309791 (Version 1)
Quarter: 2023Q2

REPORT INFORMATION
  Report Type: Spontaneous
  Country: US (occurrence: US)
  Receive Date: 20230511
  Receipt Date: 20230511
  Transmission Date: 20230721
  Serious: Yes (Life-Threatening, Other)
  Sender: FDA-Public Use
  Company Number: US-PFIZER INC-PV202300080888

PATIENT
  Age: 59 Year
  Sex: Male

DRUGS (2)
  1. PROPOFOL [Suspect]
     Active Substance: PROPOFOL
     Indication: Premedication
     Dosage: PREMEDICATION, BOLUS
  2. PROPOFOL [Suspect]
     Active Substance: PROPOFOL
     Dosage: 20 MCG/KG/MIN, BY INFUSION

REACTIONS (5)
  - Cardiac arrest [Unknown]
  - Ventricular fibrillation [Unknown]
  - Electrocardiogram QRS complex prolonged [Unknown]
  - Hyperkalaemia [Recovered/Resolved]
  - Propofol infusion syndrome [Unknown]
